FAERS Safety Report 20414160 (Version 1)
Quarter: 2022Q1

REPORT INFORMATION
  Report Type: Spontaneous
  Country: US (occurrence: US)
  Receive Date: 20220201
  Receipt Date: 20220201
  Transmission Date: 20220423
  Serious: Yes (Death, Other)
  Sender: FDA-Public Use
  Company Number: US-AMGEN-USASP2022015563

PATIENT

DRUGS (2)
  1. BEVACIZUMAB [Suspect]
     Active Substance: BEVACIZUMAB
     Indication: Glioblastoma
     Dosage: UNK MILLIGRAM/KILOGRAM
     Route: 065
  2. NIVOLUMAB [Suspect]
     Active Substance: NIVOLUMAB
     Indication: Glioblastoma
     Route: 065

REACTIONS (10)
  - Death [Fatal]
  - Liver function test abnormal [Unknown]
  - Fatigue [Unknown]
  - Deep vein thrombosis [Unknown]
  - Hypertension [Unknown]
  - Pulmonary embolism [Unknown]
  - Infection [Unknown]
  - Lipase increased [Unknown]
  - Proteinuria [Unknown]
  - Diarrhoea [Unknown]
